FAERS Safety Report 7652554-X (Version None)
Quarter: 2011Q3

REPORT INFORMATION
  Report Type: 
  Country: None (occurrence: None)
  Receive Date: 20110803
  Receipt Date: 20110802
  Transmission Date: 20111222
  Serious: Yes (Hospitalization)
  Sender: FDA-Public Use
  Company Number: US-BRISTOL-MYERS SQUIBB COMPANY-15429681

PATIENT
  Age: 37 Year
  Sex: Male

DRUGS (1)
  1. IPILIMUMAB [Suspect]
     Indication: MALIGNANT MELANOMA
     Dosage: 240MG,236MG
     Route: 042
     Dates: start: 20101104

REACTIONS (2)
  - HYPERBILIRUBINAEMIA [None]
  - PNEUMONIA [None]
